FAERS Safety Report 6091404-2 (Version None)
Quarter: 2009Q1

REPORT INFORMATION
  Report Type: 
  Country: None (occurrence: None)
  Receive Date: 20090225
  Receipt Date: 20090107
  Transmission Date: 20090719
  Serious: No
  Sender: FDA-Public Use
  Company Number: A0762535A

PATIENT
  Age: 55 Year
  Sex: Male

DRUGS (2)
  1. VERAMYST [Suspect]
     Indication: PROPHYLAXIS
     Dosage: 27.5MCG PER DAY
     Route: 045
     Dates: start: 20070101
  2. PRILOSEC [Concomitant]

REACTIONS (2)
  - BACK PAIN [None]
  - MUSCLE TIGHTNESS [None]
